FAERS Safety Report 17025080 (Version 2)
Quarter: 2019Q4

REPORT INFORMATION
  Report Type: Report from Study
  Country: DE (occurrence: DE)
  Receive Date: 20191113
  Receipt Date: 20191224
  Transmission Date: 20200122
  Serious: Yes (Hospitalization)
  Sender: FDA-Public Use
  Company Number: DE-ROCHE-2263539

PATIENT
  Sex: Female
  Weight: 57 kg

DRUGS (35)
  1. OCREVUS [Suspect]
     Active Substance: OCRELIZUMAB
     Indication: MULTIPLE SCLEROSIS
     Dosage: DATE OF TREATMENT: 09/MAY/2018
     Route: 042
     Dates: start: 20180425
  2. DEKRISTOL [Concomitant]
     Active Substance: CHOLECALCIFEROL
     Indication: HYPOVITAMINOSIS
     Route: 048
     Dates: start: 20141020, end: 20180601
  3. PREDNISOLON [PREDNISOLONE] [Concomitant]
     Active Substance: PREDNISOLONE
     Route: 042
     Dates: start: 20180509, end: 20180509
  4. CETRIZINE [Concomitant]
     Active Substance: CETIRIZINE HYDROCHLORIDE
     Indication: HYPERSENSITIVITY
     Dosage: 5-10 MG
     Route: 065
  5. ALFACALCIDOL [Concomitant]
     Active Substance: ALFACALCIDOL
     Indication: VITAMIN D DEFICIENCY
     Route: 048
     Dates: start: 20180601
  6. GLATIRAMER ACETATE. [Concomitant]
     Active Substance: GLATIRAMER ACETATE
     Route: 065
     Dates: start: 20120701, end: 20140401
  7. RANITIDIN [Concomitant]
     Active Substance: RANITIDINE HYDROCHLORIDE
     Route: 048
     Dates: start: 20190523, end: 20190525
  8. ZOPICLON [Concomitant]
     Active Substance: ZOPICLONE
     Indication: DEPRESSION
  9. L-CARNITINE [LEVOCARNITINE] [Concomitant]
     Indication: PROPHYLAXIS
     Route: 065
  10. NATALIZUMAB [Concomitant]
     Active Substance: NATALIZUMAB
     Route: 065
     Dates: start: 20140630, end: 20171001
  11. OCREVUS [Suspect]
     Active Substance: OCRELIZUMAB
     Route: 042
     Dates: start: 20181105
  12. RANITIDIN [Concomitant]
     Active Substance: RANITIDINE HYDROCHLORIDE
     Indication: PROPHYLAXIS
     Route: 048
     Dates: start: 20180424, end: 20180424
  13. AERIUS (DESLORATADINE) [Concomitant]
     Active Substance: DESLORATADINE
     Route: 048
     Dates: start: 20180508, end: 20180510
  14. AERIUS (DESLORATADINE) [Concomitant]
     Active Substance: DESLORATADINE
     Route: 048
     Dates: start: 20190523, end: 20190525
  15. DULOXETINA [DULOXETINE] [Concomitant]
     Active Substance: DULOXETINE
     Indication: DEPRESSION
     Route: 048
     Dates: start: 201610
  16. QUETIAPIN [Concomitant]
     Active Substance: QUETIAPINE
     Indication: ANXIETY DISORDER
  17. PREDNISOLUT [PREDNISOLONE HEMISUCCINATE] [Concomitant]
     Indication: PROPHYLAXIS
     Route: 042
     Dates: start: 20180425, end: 20180425
  18. QUETIAPIN [Concomitant]
     Active Substance: QUETIAPINE
     Indication: ANXIETY DISORDER
  19. BELLISSIMA [Concomitant]
     Active Substance: CHLORMADINONE ACETATE\ETHINYL ESTRADIOL
     Indication: CONTRACEPTION
     Route: 065
     Dates: start: 20180101
  20. COENZYME Q10 [Concomitant]
     Active Substance: UBIDECARENONE
     Indication: PROPHYLAXIS
     Route: 065
  21. IBUPROFEN. [Concomitant]
     Active Substance: IBUPROFEN
     Indication: HEADACHE
     Route: 065
     Dates: start: 2012
  22. MIRTAZAPINE. [Concomitant]
     Active Substance: MIRTAZAPINE
     Indication: DEPRESSION
     Route: 048
     Dates: start: 2016
  23. ZOPICLON [Concomitant]
     Active Substance: ZOPICLONE
     Indication: ANXIETY DISORDER
  24. QUETIAPIN [Concomitant]
     Active Substance: QUETIAPINE
     Indication: DEPRESSION
     Route: 048
     Dates: start: 20161001
  25. DACLIZUMAB [Concomitant]
     Active Substance: DACLIZUMAB
     Route: 065
     Dates: start: 20171101, end: 20180201
  26. MIRTAZAPINE. [Concomitant]
     Active Substance: MIRTAZAPINE
     Indication: ANXIETY DISORDER
  27. PARACETAMOL [Concomitant]
     Active Substance: ACETAMINOPHEN
     Indication: HEADACHE
     Route: 065
  28. PREDNISOLON [PREDNISOLONE] [Concomitant]
     Active Substance: PREDNISOLONE
     Route: 042
     Dates: start: 20181105, end: 20181105
  29. PREDNISOLON [PREDNISOLONE] [Concomitant]
     Active Substance: PREDNISOLONE
     Route: 042
     Dates: start: 20190524, end: 20190524
  30. RANITIDIN [Concomitant]
     Active Substance: RANITIDINE HYDROCHLORIDE
     Route: 048
     Dates: start: 20180508, end: 20180510
  31. RANITIDIN [Concomitant]
     Active Substance: RANITIDINE HYDROCHLORIDE
     Route: 048
     Dates: start: 20181104, end: 20181106
  32. AERIUS (DESLORATADINE) [Concomitant]
     Active Substance: DESLORATADINE
     Route: 048
     Dates: start: 20180424, end: 20180426
  33. QUETIAPIN [Concomitant]
     Active Substance: QUETIAPINE
     Indication: DEPRESSION
     Route: 048
     Dates: start: 20180503
  34. AERIUS (DESLORATADINE) [Concomitant]
     Active Substance: DESLORATADINE
     Indication: PROPHYLAXIS
     Route: 048
     Dates: start: 20181104, end: 20181106
  35. DULOXETINA [DULOXETINE] [Concomitant]
     Active Substance: DULOXETINE
     Indication: ANXIETY DISORDER

REACTIONS (1)
  - Fibroadenoma of breast [Recovered/Resolved]
